FAERS Safety Report 24951529 (Version 1)
Quarter: 2025Q1

REPORT INFORMATION
  Report Type: Spontaneous
  Country: US (occurrence: US)
  Receive Date: 20250210
  Receipt Date: 20250210
  Transmission Date: 20250408
  Serious: No
  Sender: INTRA-CELLULAR THERAPIES
  Company Number: US-INTRA-CELLULAR THERAPIES, INC.-2024ICT01820

PATIENT
  Age: 31 Year
  Sex: Female
  Weight: 81.633 kg

DRUGS (1)
  1. CAPLYTA [Suspect]
     Active Substance: LUMATEPERONE
     Indication: Bipolar disorder
     Dosage: 42 MG, 1X/DAY
     Route: 048
     Dates: start: 20241107, end: 20241107

REACTIONS (7)
  - Hot flush [Recovered/Resolved]
  - Nasal congestion [Recovered/Resolved]
  - Tension headache [Recovered/Resolved]
  - Photophobia [Recovered/Resolved]
  - Phonophobia [Recovered/Resolved]
  - Somnolence [Recovered/Resolved]
  - Fatigue [Recovered/Resolved]

NARRATIVE: CASE EVENT DATE: 20241107
